FAERS Safety Report 19263965 (Version 1)
Quarter: 2021Q2

REPORT INFORMATION
  Report Type: Spontaneous
  Country: US (occurrence: US)
  Receive Date: 20210515
  Receipt Date: 20210515
  Transmission Date: 20210717
  Serious: No
  Sender: FDA-Public Use
  Company Number: None

PATIENT
  Age: 38 Year
  Sex: Female
  Weight: 63.9 kg

DRUGS (2)
  1. NP THYROID [Suspect]
     Active Substance: LEVOTHYROXINE\LIOTHYRONINE
     Indication: HYPOTHYROIDISM
     Dosage: ?          QUANTITY:210 TABLET(S);?
     Route: 048
     Dates: start: 20200520, end: 20210515
  2. LEVOTHYROXIN [Concomitant]
     Active Substance: LEVOTHYROXINE

REACTIONS (8)
  - Hypothyroidism [None]
  - Impaired work ability [None]
  - Temperature regulation disorder [None]
  - Insomnia [None]
  - Fatigue [None]
  - Depression [None]
  - Adrenal disorder [None]
  - Weight increased [None]

NARRATIVE: CASE EVENT DATE: 20201215
